FAERS Safety Report 9502876 (Version 1)
Quarter: 2013Q1

REPORT INFORMATION
  Report Type: Spontaneous
  Country: US (occurrence: None)
  Receive Date: 20130225
  Receipt Date: 20130225
  Transmission Date: 20140127
  Serious: Yes (Other)
  Sender: FDA-Public Use
  Company Number: 366270

PATIENT
  Age: 71 Year
  Sex: Female
  Weight: 69.8 kg

DRUGS (7)
  1. VICTOZA (LIRAGLUTIDE) SOLUTION FOR INJECTION, 6MG/ML [Suspect]
     Indication: TYPE 2 DIABETES MELLITUS
     Route: 058
     Dates: start: 20121101, end: 20121107
  2. GABAPENTIN (GABAPENTIN) [Concomitant]
  3. LISINOPRIL (LISINOPRIL) [Concomitant]
  4. OMEPRAZOLE (OMEPRAZOLE) [Concomitant]
  5. METOPROLOL (METOPROLOL) [Concomitant]
  6. ATORVASTATIN (ATORVASTATIN) [Concomitant]
  7. HYDROXYCHLOROQUINE (HYDROXYCHLOROQUINE) [Concomitant]

REACTIONS (5)
  - Dehydration [None]
  - Nausea [None]
  - Vomiting [None]
  - Diarrhoea [None]
  - Pruritus [None]
